FAERS Safety Report 8661856 (Version 2)
Quarter: 2012Q4

REPORT INFORMATION
  Report Type: 
  Country: US (occurrence: US)
  Receive Date: 20120712
  Receipt Date: 20121016
  Transmission Date: 20130627
  Serious: Yes (Hospitalization)
  Sender: FDA-Public Use
  Company Number: PHHO2010US19136

PATIENT
  Age: 66 Year
  Sex: Female
  Weight: 56.69 kg

DRUGS (14)
  1. PLACEBO [Suspect]
     Indication: BREAST CANCER METASTATIC
     Dosage: UNK
     Route: 048
     Dates: start: 20101213, end: 20101213
  2. PLACEBO [Suspect]
     Dosage: Double blinded
     Route: 048
     Dates: start: 20101229
  3. PACLITAXEL [Suspect]
     Indication: BREAST CANCER METASTATIC
     Dosage: 70 mg/m2, UNK
     Dates: start: 20101213, end: 20101213
  4. BEVACIZUMAB [Concomitant]
     Indication: BREAST CANCER METASTATIC
     Dosage: UNK
     Dates: start: 20101213, end: 20101213
  5. VITAMIN D [Concomitant]
     Dosage: UNK
     Dates: start: 2005
  6. FOSAMAX [Concomitant]
     Dosage: UNK
     Dates: start: 2005
  7. LISINOPRIL [Concomitant]
     Dosage: UNK
     Dates: start: 2010
  8. JANUMET [Concomitant]
     Dosage: UNK
     Dates: start: 2009
  9. GLYBURIDE [Concomitant]
     Dosage: UNK
     Dates: start: 2009
  10. BACTRIM DS [Concomitant]
     Dosage: UNK
     Dates: start: 20101130
  11. ALOXI [Concomitant]
     Dosage: UNK
     Dates: start: 20101213, end: 20101213
  12. DECADRON [Concomitant]
     Dosage: UNK
     Dates: start: 20101213, end: 20101213
  13. BENADRYL [Concomitant]
     Dosage: UNK
     Dates: start: 20101213, end: 20101213
  14. RANITIDINE [Concomitant]

REACTIONS (3)
  - Oesophageal obstruction [Recovered/Resolved]
  - Haematemesis [Not Recovered/Not Resolved]
  - Pneumothorax [Recovered/Resolved]
